FAERS Safety Report 7428789-8 (Version None)
Quarter: 2011Q2

REPORT INFORMATION
  Report Type: 
  Country: None (occurrence: None)
  Receive Date: 20110421
  Receipt Date: 20110412
  Transmission Date: 20111010
  Serious: Yes (Hospitalization)
  Sender: FDA-Public Use
  Company Number: US-BRISTOL-MYERS SQUIBB COMPANY-15668833

PATIENT
  Age: 51 Year
  Sex: Female
  Weight: 88 kg

DRUGS (7)
  1. FIBERCON [Concomitant]
     Indication: BLOOD CHOLESTEROL
  2. SYNTHROID [Concomitant]
     Indication: HYPOTHYROIDISM
  3. BENICAR HCT [Concomitant]
     Indication: HYPERTENSION
  4. SIMVASTATIN [Suspect]
     Indication: BLOOD CHOLESTEROL
  5. ONGLYZA [Suspect]
     Indication: TYPE 2 DIABETES MELLITUS
  6. VICTOZA [Suspect]
     Indication: TYPE 2 DIABETES MELLITUS
     Dates: start: 20100826, end: 20110330
  7. METFORMIN HCL [Concomitant]
     Indication: TYPE 2 DIABETES MELLITUS

REACTIONS (2)
  - WEIGHT DECREASED [None]
  - PANCREATITIS [None]
